FAERS Safety Report 5113336-6 (Version None)
Quarter: 2006Q3

REPORT INFORMATION
  Report Type: 
  Country: None (occurrence: None)
  Receive Date: 20060920
  Receipt Date: 20060907
  Transmission Date: 20061208
  Serious: Yes (Other)
  Sender: FDA-Public Use
  Company Number: 2006110823

PATIENT
  Age: 66 Year
  Sex: Male
  Weight: 70.3075 kg

DRUGS (5)
  1. PREDNISONE TAB [Suspect]
     Indication: NEURALGIA
     Dosage: 60 MG (20 MG, 1 D)
     Dates: start: 20060101
  2. CELEBREX [Suspect]
     Indication: NEURALGIA
     Dosage: 200 MG, (200 MG, 1 D)
     Dates: start: 20060201
  3. LYRICA [Suspect]
     Indication: NEURALGIA
     Dosage: 150 MG (75 MG, 2 IN 1 D)
     Dates: start: 20060401, end: 20060906
  4. RANITIDINE [Concomitant]
  5. UROXATRAL [Concomitant]

REACTIONS (8)
  - CATARACT OPERATION [None]
  - DRUG INEFFECTIVE [None]
  - GASTRIC DISORDER [None]
  - INCORRECT DOSE ADMINISTERED [None]
  - OEDEMA [None]
  - RASH [None]
  - SELF-MEDICATION [None]
  - VISION BLURRED [None]
